FAERS Safety Report 13782341 (Version 2)
Quarter: 2017Q3

REPORT INFORMATION
  Report Type: Spontaneous
  Country: DE (occurrence: DE)
  Receive Date: 20170724
  Receipt Date: 20170824
  Transmission Date: 20171127
  Serious: Yes (Hospitalization, Other)
  Sender: FDA-Public Use
  Company Number: DE-ASTELLAS-2017US028449

PATIENT
  Sex: Male

DRUGS (2)
  1. PROGRAF [Suspect]
     Active Substance: TACROLIMUS\TACROLIMUS ANHYDROUS
     Indication: LIVER TRANSPLANT
     Dosage: UNK UNK, TWICE DAILY (2-0-2)
     Route: 065
     Dates: start: 2009
  2. ADVAGRAF [Suspect]
     Active Substance: TACROLIMUS
     Indication: LIVER TRANSPLANT
     Dosage: UNK, TWICE DAILY
     Route: 065

REACTIONS (11)
  - Infection [Unknown]
  - Pain [Unknown]
  - Trigeminal nerve disorder [Unknown]
  - Blindness [Unknown]
  - Pruritus [Unknown]
  - Syncope [Unknown]
  - Photopsia [Unknown]
  - Facial paresis [Unknown]
  - Cerebrovascular accident [Unknown]
  - Loss of consciousness [Unknown]
  - Inappropriate schedule of drug administration [Unknown]
